FAERS Safety Report 17425824 (Version 6)
Quarter: 2021Q2

REPORT INFORMATION
  Report Type: Report from Study
  Country: ES (occurrence: ES)
  Receive Date: 20200217
  Receipt Date: 20210610
  Transmission Date: 20210716
  Serious: Yes (Hospitalization)
  Sender: FDA-Public Use
  Company Number: ES-CELGENEUS-ESP-20200203345

PATIENT
  Age: 86 Year
  Sex: Female
  Weight: 72 kg

DRUGS (3)
  1. FEDRATINIB [Suspect]
     Active Substance: FEDRATINIB
     Indication: PRIMARY MYELOFIBROSIS
     Dosage: 400 MG X 1 X 1 DAYS
     Route: 048
     Dates: start: 20191210, end: 20200123
  2. ATENOLOL. [Concomitant]
     Active Substance: ATENOLOL
     Indication: HYPERTENSION
     Dosage: 25 MG X 1 X 1 DAYS
     Route: 048
     Dates: start: 19900101
  3. PARACETAMOL [Concomitant]
     Active Substance: ACETAMINOPHEN
     Indication: PAIN PROPHYLAXIS
     Dosage: 1 G X 3 X 1 DAYS
     Route: 048
     Dates: start: 20180508

REACTIONS (1)
  - Renal failure [Recovered/Resolved]

NARRATIVE: CASE EVENT DATE: 20200123
